FAERS Safety Report 20640979 (Version 1)
Quarter: 2022Q1

REPORT INFORMATION
  Report Type: Report from Study
  Country: US (occurrence: US)
  Receive Date: 20220327
  Receipt Date: 20220327
  Transmission Date: 20220423
  Serious: Yes (Hospitalization)
  Sender: FDA-Public Use
  Company Number: US-Accord-258195

PATIENT
  Sex: Female
  Weight: 95.71 kg

DRUGS (6)
  1. CLOZAPINE [Suspect]
     Active Substance: CLOZAPINE
     Indication: Schizoaffective disorder
     Dosage: TAKE 3 QHS
     Route: 048
     Dates: start: 2009
  2. SERTRALINE [Concomitant]
     Active Substance: SERTRALINE HYDROCHLORIDE
     Dosage: DAILY
  3. DEPAKOTE [Concomitant]
     Active Substance: DIVALPROEX SODIUM
     Dosage: 3 TABS QHS
  4. RISPERIDONE [Concomitant]
     Active Substance: RISPERIDONE
     Dosage: 1 TAB PO BID
  5. LORAZEPAM [Concomitant]
     Active Substance: LORAZEPAM
     Dosage: BID
  6. SENNA [Concomitant]
     Active Substance: SENNA LEAF\SENNOSIDES\SENNOSIDES A AND B
     Dosage: 3 PO QHS

REACTIONS (2)
  - Gait inability [Unknown]
  - Lower limb fracture [Unknown]
